FAERS Safety Report 16266727 (Version 2)
Quarter: 2019Q2

REPORT INFORMATION
  Report Type: Spontaneous
  Country: US (occurrence: US)
  Receive Date: 20190502
  Receipt Date: 20190603
  Transmission Date: 20190711
  Serious: Yes (Other)
  Sender: FDA-Public Use
  Company Number: US-PFIZER INC-2019051932

PATIENT
  Age: 58 Year
  Sex: Male

DRUGS (1)
  1. XELJANZ [Suspect]
     Active Substance: TOFACITINIB CITRATE
     Dosage: 5 MG, UNK
     Dates: end: 20190521

REACTIONS (4)
  - Defaecation urgency [Recovered/Resolved]
  - Haematochezia [Recovered/Resolved]
  - Muscle spasms [Unknown]
  - Frequent bowel movements [Recovering/Resolving]
